FAERS Safety Report 8174065-8 (Version None)
Quarter: 2012Q1

REPORT INFORMATION
  Report Type: 
  Country: None (occurrence: None)
  Receive Date: 20120224
  Receipt Date: 20120210
  Transmission Date: 20120608
  Serious: Yes (Hospitalization)
  Sender: FDA-Public Use
  Company Number: 1000026655

PATIENT
  Age: 34 Year
  Sex: Female
  Weight: 60 kg

DRUGS (1)
  1. FOSFOMYCIN (FOSFOMYCIN TROMETAMOL) (3000 MILLIGRAM, GRANULATE) [Suspect]
     Indication: URINARY TRACT INFECTION
     Dosage: (3000 MG, ONCE) , ORAL
     Route: 048
     Dates: start: 20111209, end: 20111209

REACTIONS (6)
  - ATRIAL FIBRILLATION [None]
  - RESTLESSNESS [None]
  - MALAISE [None]
  - DYSPNOEA [None]
  - TACHYARRHYTHMIA [None]
  - PALPITATIONS [None]
